FAERS Safety Report 20495045 (Version 2)
Quarter: 2022Q4

REPORT INFORMATION
  Report Type: Spontaneous
  Country: DE (occurrence: DE)
  Receive Date: 20220221
  Receipt Date: 20221020
  Transmission Date: 20230113
  Serious: Yes (Other)
  Sender: FDA-Public Use
  Company Number: DE-BRISTOL-MYERS SQUIBB COMPANY-BMS-2022-022092

PATIENT
  Age: 50 Year

DRUGS (6)
  1. OPDIVO [Suspect]
     Active Substance: NIVOLUMAB
     Indication: Signet-ring cell carcinoma
     Dosage: UNAVAILABLE
     Route: 065
     Dates: start: 202111
  2. OPDIVO [Suspect]
     Active Substance: NIVOLUMAB
     Indication: Metastases to peritoneum
  3. OPDIVO [Suspect]
     Active Substance: NIVOLUMAB
     Indication: Metastases to lymph nodes
  4. YERVOY [Suspect]
     Active Substance: IPILIMUMAB
     Indication: Metastases to peritoneum
     Dosage: UNK
     Route: 065
     Dates: start: 202111
  5. YERVOY [Suspect]
     Active Substance: IPILIMUMAB
     Indication: Metastases to lymph nodes
  6. YERVOY [Suspect]
     Active Substance: IPILIMUMAB
     Indication: Signet-ring cell carcinoma

REACTIONS (3)
  - Epilepsy [Recovered/Resolved]
  - Focal dyscognitive seizures [Recovered/Resolved]
  - Intentional product use issue [Unknown]
